FAERS Safety Report 6888004-0 (Version None)
Quarter: 2010Q3

REPORT INFORMATION
  Report Type: 
  Country: None (occurrence: None)
  Receive Date: 20100730
  Receipt Date: 20100726
  Transmission Date: 20110219
  Serious: Yes (Congenital Anomaly)
  Sender: FDA-Public Use
  Company Number: A0872567A

PATIENT
  Sex: Female

DRUGS (10)
  1. COMBIVIR [Suspect]
     Indication: HIV INFECTION
     Dates: start: 20020918
  2. VIDEX [Suspect]
     Indication: HIV INFECTION
     Dates: start: 20020821, end: 20020918
  3. VIRAMUNE [Suspect]
     Indication: HIV INFECTION
     Dates: start: 20020918, end: 20021015
  4. VIRACEPT [Suspect]
     Indication: HIV INFECTION
     Dates: start: 20021015
  5. METRONIDAZOLE [Concomitant]
  6. ASCORBIC ACID [Concomitant]
  7. BENZATHINE [Concomitant]
  8. DEXCHLORPHENIRAMINE MALEATE [Concomitant]
  9. IRON PREPARATION [Concomitant]
  10. NEBACETIN [Concomitant]

REACTIONS (3)
  - DRUG EXPOSURE DURING PREGNANCY [None]
  - EXOMPHALOS [None]
  - PATENT DUCTUS ARTERIOSUS [None]
